FAERS Safety Report 11290926 (Version 1)
Quarter: 2015Q3

REPORT INFORMATION
  Report Type: Spontaneous
  Country: US (occurrence: US)
  Receive Date: 20150722
  Receipt Date: 20150722
  Transmission Date: 20151125
  Serious: No
  Sender: FDA-Public Use
  Company Number: US-UNITED THERAPEUTICS-UNT-2015-005579

PATIENT
  Sex: Female
  Weight: 52.61 kg

DRUGS (1)
  1. REMODULIN [Suspect]
     Active Substance: TREPROSTINIL
     Indication: PULMONARY ARTERIAL HYPERTENSION
     Dosage: 0.029 ?G/KG/MIN, CONTINUING
     Route: 058
     Dates: start: 20150125

REACTIONS (2)
  - Device dislocation [Unknown]
  - Drug dose omission [Unknown]
